FAERS Safety Report 10945788 (Version 1)
Quarter: 2015Q1

REPORT INFORMATION
  Report Type: Spontaneous
  Country: BR (occurrence: BR)
  Receive Date: 20150323
  Receipt Date: 20150323
  Transmission Date: 20150721
  Serious: Yes (Other)
  Sender: FDA-Public Use
  Company Number: BR-PFIZER INC-2015097102

PATIENT
  Age: 75 Year
  Sex: Male
  Weight: 60 kg

DRUGS (6)
  1. MYTEDOM [Concomitant]
     Indication: PAIN
     Dosage: UNK, AS NEEDED (WHEN FEELING PAINS)
  2. LUFTAL [Concomitant]
     Indication: FLATULENCE
     Dosage: UNK
  3. LYRICA [Suspect]
     Active Substance: PREGABALIN
     Dosage: 75 MG, DAILY
     Route: 048
     Dates: start: 201409
  4. CALCIUM [Concomitant]
     Active Substance: CALCIUM
     Indication: BONE DISORDER
     Dosage: UNK
  5. DIOSMIN [Concomitant]
     Active Substance: DIOSMIN
     Indication: CARDIOVASCULAR DISORDER
     Dosage: UNK
  6. PLASIL [Concomitant]
     Active Substance: METOCLOPRAMIDE HYDROCHLORIDE
     Indication: ABDOMINAL DISCOMFORT
     Dosage: UNK

REACTIONS (2)
  - Neoplasm [Unknown]
  - Memory impairment [Recovering/Resolving]
